FAERS Safety Report 9934618 (Version 1)
Quarter: 2014Q1

REPORT INFORMATION
  Report Type: Spontaneous
  Country: NO (occurrence: NO)
  Receive Date: 20140228
  Receipt Date: 20140228
  Transmission Date: 20141002
  Serious: Yes (Hospitalization, Disabling)
  Sender: FDA-Public Use
  Company Number: NO-UCBSA-113175

PATIENT
  Age: 56 Year
  Sex: Female

DRUGS (1)
  1. KEPPRA [Suspect]
     Indication: EPILEPSY
     Route: 048
     Dates: start: 20130401, end: 2013

REACTIONS (6)
  - Hypoaesthesia [Recovering/Resolving]
  - Disturbance in attention [Recovering/Resolving]
  - Pollakiuria [Recovering/Resolving]
  - Memory impairment [Recovering/Resolving]
  - Decreased appetite [Recovering/Resolving]
  - Personality change [Recovering/Resolving]
